FAERS Safety Report 9192821 (Version 1)
Quarter: 2013Q1

REPORT INFORMATION
  Report Type: Spontaneous
  Country: FR (occurrence: FR)
  Receive Date: 20130327
  Receipt Date: 20130327
  Transmission Date: 20140127
  Serious: Yes (Hospitalization, Other)
  Sender: FDA-Public Use
  Company Number: FR-PFIZER INC-2013092490

PATIENT
  Age: 57 Year
  Sex: Male

DRUGS (8)
  1. REVATIO [Suspect]
     Indication: PULMONARY ARTERIAL HYPERTENSION
     Dosage: 3X20 MG, ONCE DAILY
     Route: 048
     Dates: start: 200709
  2. INTELENCE [Interacting]
     Indication: HIV TEST POSITIVE
     Dosage: 2 DF, TWICE DAILY
     Route: 048
  3. VOLIBRIS [Interacting]
     Indication: PULMONARY ARTERIAL HYPERTENSION
     Dosage: 10 MG, ONCE DAILY
     Route: 048
     Dates: start: 20090223
  4. ISENTRESS [Concomitant]
     Dosage: UNK
  5. KALEORID [Concomitant]
     Dosage: UNK
  6. LASILIX [Concomitant]
     Dosage: UNK
  7. STILNOX [Concomitant]
     Dosage: UNK
  8. EPIVIR [Concomitant]
     Dosage: UNK

REACTIONS (4)
  - Drug interaction [Not Recovered/Not Resolved]
  - Condition aggravated [Not Recovered/Not Resolved]
  - Pulmonary arterial hypertension [Not Recovered/Not Resolved]
  - Cardiac failure [Unknown]
